FAERS Safety Report 4597836-3 (Version None)
Quarter: 2005Q1

REPORT INFORMATION
  Report Type: 
  Country: None (occurrence: None)
  Receive Date: 20050125
  Receipt Date: 20040901
  Transmission Date: 20050727
  Serious: No
  Sender: FDA-Public Use
  Company Number: USA030227847

PATIENT
  Age: 53 Year
  Sex: Female
  Weight: 51 kg

DRUGS (3)
  1. FORTEO [Suspect]
     Indication: OSTEOPOROSIS
     Dosage: 20 UG DAY
     Dates: start: 20030109
  2. CALCIUM GLUCONATE [Concomitant]
  3. MULTI-VITAMINS [Concomitant]

REACTIONS (4)
  - ACCIDENTAL OVERDOSE [None]
  - BONE DENSITY DECREASED [None]
  - INJECTION SITE RASH [None]
  - MEDICATION ERROR [None]
